FAERS Safety Report 5166528-4 (Version None)
Quarter: 2006Q4

REPORT INFORMATION
  Report Type: 
  Country: None (occurrence: None)
  Receive Date: 20061129
  Receipt Date: 20061114
  Transmission Date: 20070319
  Serious: Yes (Other)
  Sender: FDA-Public Use
  Company Number: 2006-302

PATIENT
  Age: 53 Year
  Sex: Female

DRUGS (14)
  1. CIPROFLOXACIN [Suspect]
     Indication: URINARY TRACT INFECTION
     Dosage: 500MG (2/DAY)
     Dates: start: 20060920, end: 20060920
  2. AMANTADINE HCL [Concomitant]
  3. AMITRIPTYLINE HCL [Concomitant]
  4. ATENOLOL [Concomitant]
  5. BACLOFEN [Concomitant]
  6. CEPHALEXIN [Concomitant]
  7. DOCUSATE [Concomitant]
  8. EPADERM [Concomitant]
  9. FLUOXETINE GABAPENTIN [Concomitant]
  10. MAXEPA [Concomitant]
  11. OXYBUTYNIN [Concomitant]
  12. ACETAMINOPHEN [Concomitant]
  13. SENNA [Concomitant]
  14. BOTOX [Concomitant]

REACTIONS (6)
  - ALANINE AMINOTRANSFERASE INCREASED [None]
  - ASPARTATE AMINOTRANSFERASE INCREASED [None]
  - BACK PAIN [None]
  - GAMMA-GLUTAMYLTRANSFERASE INCREASED [None]
  - MUSCULOSKELETAL PAIN [None]
  - PYREXIA [None]
